FAERS Safety Report 6391618-8 (Version None)
Quarter: 2009Q4

REPORT INFORMATION
  Report Type: 
  Country: None (occurrence: None)
  Receive Date: 20091007
  Receipt Date: 20090707
  Transmission Date: 20100525
  Serious: No
  Sender: FDA-Public Use
  Company Number: A0795749A

PATIENT
  Age: 67 Year
  Sex: Male

DRUGS (4)
  1. ADVAIR DISKUS 100/50 [Suspect]
     Indication: CHRONIC OBSTRUCTIVE PULMONARY DISEASE
     Dosage: 1PUFF TWICE PER DAY
     Route: 055
     Dates: start: 20081101, end: 20090704
  2. ATIVAN [Concomitant]
  3. ZOLOFT [Concomitant]
  4. ZYRTEC [Concomitant]

REACTIONS (2)
  - PRURITUS GENERALISED [None]
  - RASH MACULAR [None]
